FAERS Safety Report 9146342 (Version 5)
Quarter: 2013Q4

REPORT INFORMATION
  Report Type: Report from Study
  Country: US (occurrence: US)
  Receive Date: 20130307
  Receipt Date: 20131018
  Transmission Date: 20140711
  Serious: Yes (Hospitalization)
  Sender: FDA-Public Use
  Company Number: US-US-EMD SERONO, INC.-7196836

PATIENT
  Age: 41 Year
  Sex: Male
  Weight: 161 kg

DRUGS (7)
  1. REBIF [Suspect]
     Indication: MULTIPLE SCLEROSIS
     Route: 058
     Dates: start: 20120904, end: 201306
  2. BUSPAR [Concomitant]
     Indication: ANXIETY
     Dates: end: 201302
  3. BUSPAR [Concomitant]
     Indication: DEPRESSION
  4. BUSPAR [Concomitant]
     Indication: ANGER
  5. ALPRAZOLAM [Concomitant]
     Indication: ANXIETY
     Dates: end: 201306
  6. ALPRAZOLAM [Concomitant]
     Indication: DEPRESSION
  7. HYDROCODONE [Concomitant]
     Indication: PAIN

REACTIONS (15)
  - Mental status changes [Recovering/Resolving]
  - Pulmonary mass [Unknown]
  - Pneumonia [Unknown]
  - Fall [Recovering/Resolving]
  - Anger [Recovering/Resolving]
  - Anxiety [Recovering/Resolving]
  - Hallucination [Recovering/Resolving]
  - Panic attack [Recovering/Resolving]
  - Headache [Not Recovered/Not Resolved]
  - Multiple sclerosis [Unknown]
  - Depression [Recovering/Resolving]
  - Blood glucose increased [Unknown]
  - Faecal incontinence [Unknown]
  - Multiple sclerosis [Unknown]
  - Pain [Unknown]
